FAERS Safety Report 7771045-9 (Version None)
Quarter: 2011Q3

REPORT INFORMATION
  Report Type: 
  Country: None (occurrence: None)
  Receive Date: 20110922
  Receipt Date: 20110405
  Transmission Date: 20111222
  Serious: No
  Sender: FDA-Public Use
  Company Number: US-ASTRAZENECA-2011SE19256

PATIENT
  Age: 44 Year
  Sex: Female

DRUGS (3)
  1. SEROQUEL [Suspect]
     Indication: SLEEP DISORDER
     Dosage: TWO 300 MG AT NIGHT
     Route: 048
     Dates: start: 20060101, end: 20110330
  2. SEROQUEL [Suspect]
     Indication: DEPRESSION
     Dosage: TWO 300 MG AT NIGHT
     Route: 048
     Dates: start: 20060101, end: 20110330
  3. XANAX [Concomitant]

REACTIONS (4)
  - TACHYCARDIA [None]
  - DRUG DOSE OMISSION [None]
  - DEPRESSED MOOD [None]
  - RESTLESSNESS [None]
